FAERS Safety Report 17685980 (Version 1)
Quarter: 2020Q2

REPORT INFORMATION
  Report Type: Spontaneous
  Country: MY (occurrence: MY)
  Receive Date: 20200420
  Receipt Date: 20200420
  Transmission Date: 20200714
  Serious: Yes (Death, Hospitalization, Other)
  Sender: FDA-Public Use
  Company Number: MY-BAUSCH-BL-2020-010892

PATIENT
  Age: 71 Year
  Sex: Female

DRUGS (6)
  1. ETORICOXIB. [Concomitant]
     Active Substance: ETORICOXIB
     Indication: NEURALGIA
  2. CYCLOPHOSPHAMIDE. [Suspect]
     Active Substance: CYCLOPHOSPHAMIDE
     Indication: NEUROPATHY PERIPHERAL
     Dosage: TWO (UNSPECIFIED)-WEEKLY
     Route: 042
  3. LEFLUNOMIDE. [Suspect]
     Active Substance: LEFLUNOMIDE
     Indication: RHEUMATOID ARTHRITIS
     Route: 065
  4. CYCLOPHOSPHAMIDE. [Suspect]
     Active Substance: CYCLOPHOSPHAMIDE
     Indication: RHEUMATOID VASCULITIS
  5. PREDNISOLONE. [Suspect]
     Active Substance: PREDNISOLONE
     Indication: NEUROPATHY PERIPHERAL
     Dosage: HIGH DOSE
     Route: 065
  6. PREDNISOLONE. [Suspect]
     Active Substance: PREDNISOLONE
     Indication: RHEUMATOID VASCULITIS

REACTIONS (5)
  - Osteomyelitis [Fatal]
  - Muscle abscess [Fatal]
  - Therapy partial responder [Unknown]
  - Staphylococcal infection [Fatal]
  - Staphylococcal bacteraemia [Fatal]
